FAERS Safety Report 7831350-4 (Version None)
Quarter: 2011Q4

REPORT INFORMATION
  Report Type: 
  Country: None (occurrence: None)
  Receive Date: 20111021
  Receipt Date: 20111017
  Transmission Date: 20120403
  Serious: Yes (Death, Other)
  Sender: FDA-Public Use
  Company Number: PT-ELI_LILLY_AND_COMPANY-PT201110005307

PATIENT
  Age: 58 Year
  Sex: Male

DRUGS (3)
  1. PEMETREXED [Suspect]
     Indication: ADENOCARCINOMA
     Dosage: 500 MG/M2, EACH 21 DAYS
  2. CISPLATIN [Concomitant]
     Dosage: 100 MG/M2, ON DAY ONE OF 21DAY CYCLE
  3. GEMCITABINE HYDROCHLORIDE [Suspect]
     Indication: ADENOCARCINOMA
     Dosage: 1250 MG/M2, ONE DAY ONE AND EIGHT OF 21DAY CYCLE

REACTIONS (4)
  - FEBRILE NEUTROPENIA [None]
  - DEATH [None]
  - THROMBOCYTOPENIA [None]
  - NEOPLASM MALIGNANT [None]
